FAERS Safety Report 5151757-6 (Version None)
Quarter: 2006Q4

REPORT INFORMATION
  Report Type: 
  Country: None (occurrence: None)
  Receive Date: 20061108
  Receipt Date: 20061024
  Transmission Date: 20070319
  Serious: Yes (Other)
  Sender: FDA-Public Use
  Company Number: JP200609005222

PATIENT
  Sex: Male

DRUGS (5)
  1. GEMZAR [Suspect]
     Indication: PROSTATE CANCER
     Dosage: 700 MG/M2, OTHER, INTRAVENOUS
     Route: 042
  2. CISPLATIN [Concomitant]
  3. DIETHYLSTILBESTROL [Concomitant]
  4. UFT [Concomitant]
  5. DEXAMETHASONE TAB [Concomitant]

REACTIONS (1)
  - PULMONARY INFARCTION [None]
